FAERS Safety Report 6860755-3 (Version None)
Quarter: 2010Q3

REPORT INFORMATION
  Report Type: 
  Country: None (occurrence: None)
  Receive Date: 20100720
  Receipt Date: 20100714
  Transmission Date: 20110219
  Serious: Yes (Other)
  Sender: FDA-Public Use
  Company Number: US-SANOFI-AVENTIS-2010SA041532

PATIENT
  Sex: Male

DRUGS (6)
  1. AMBIEN CR [Suspect]
     Route: 048
  2. PLAVIX [Concomitant]
  3. LIPITOR [Concomitant]
  4. CYMBALTA [Concomitant]
  5. LISINOPRIL [Concomitant]
  6. ALL OTHER THERAPEUTIC PRODUCTS [Concomitant]

REACTIONS (3)
  - APHASIA [None]
  - OVERDOSE [None]
  - PARALYSIS [None]
